FAERS Safety Report 8795675 (Version 1)
Quarter: 2012Q4

REPORT INFORMATION
  Report Type: 
  Country: BR (occurrence: BR)
  Receive Date: 20120920
  Receipt Date: 20120920
  Transmission Date: 20130627
  Serious: Yes (Other)
  Sender: FDA-Public Use
  Company Number: PHHY2012BR071550

PATIENT
  Sex: Female
  Weight: 58 kg

DRUGS (9)
  1. GENTEAL MILD [Suspect]
     Indication: DRY EYE
     Dosage: 1 drop in each eye when needed
     Dates: start: 2003
  2. GENTEAL MILD [Suspect]
     Indication: EYE PRURITUS
  3. GENTEAL MILD [Suspect]
     Indication: EYE IRRITATION
  4. CYCLOBENZAPRINE [Suspect]
     Indication: FIBROMYALGIA
     Dosage: Only 5 tablets
  5. CILODEX [Concomitant]
     Dosage: 1 drop in left eye and 2 drops in right eye
  6. ATORVASTATIN [Concomitant]
     Indication: BLOOD CHOLESTEROL
     Dosage: 1 tablet at night
  7. VENALOT (TROXERUTIN/COUMARIN) [Concomitant]
     Indication: VARICOSE VEIN
     Dosage: UNK UKN, UNK
  8. ACTONEL [Concomitant]
     Indication: BONE DISORDER
     Dosage: UNK UKN, UNK
  9. CALCIUM PHOSPHATE W/COLECALCIFEROL [Concomitant]
     Indication: BONE DISORDER
     Dosage: UNK UKN, UNK

REACTIONS (7)
  - Cataract [Recovered/Resolved]
  - Corneal degeneration [Unknown]
  - Fibromyalgia [Unknown]
  - Liver disorder [Unknown]
  - Yellow skin [Unknown]
  - Ocular icterus [Unknown]
  - Malaise [Unknown]
